FAERS Safety Report 14875255 (Version 2)
Quarter: 2018Q2

REPORT INFORMATION
  Report Type: Report from Study
  Country: US (occurrence: US)
  Receive Date: 20180510
  Receipt Date: 20180511
  Transmission Date: 20180711
  Serious: Yes (Other)
  Sender: FDA-Public Use
  Company Number: US-SA-2018SA121825

PATIENT
  Age: 58 Year
  Sex: Male

DRUGS (2)
  1. MULTAQ [Suspect]
     Active Substance: DRONEDARONE
     Indication: ATRIAL FIBRILLATION
     Route: 048
     Dates: start: 20180417
  2. MULTAQ [Suspect]
     Active Substance: DRONEDARONE
     Indication: ATRIAL FIBRILLATION
     Route: 048
     Dates: start: 20180417

REACTIONS (10)
  - Oxygen saturation decreased [Unknown]
  - Muscular weakness [Unknown]
  - Bronchitis [Unknown]
  - Headache [Unknown]
  - Muscle spasms [Unknown]
  - Bronchial irritation [Unknown]
  - Hypopnoea [Unknown]
  - Dizziness [Unknown]
  - Dysphonia [Unknown]
  - Asthenia [Unknown]

NARRATIVE: CASE EVENT DATE: 20180423
